FAERS Safety Report 17389964 (Version 1)
Quarter: 2020Q1

REPORT INFORMATION
  Report Type: Spontaneous
  Country: US (occurrence: US)
  Receive Date: 20200124
  Receipt Date: 20200124
  Transmission Date: 20200409
  Serious: Yes (Life-Threatening, Hospitalization)
  Sender: FDA-Public Use
  Company Number: None

PATIENT
  Age: 30 Year
  Sex: Female
  Weight: 27.67 kg

DRUGS (2)
  1. CARBAMAZEPINE LIQUID 100MG/5ML [Suspect]
     Active Substance: CARBAMAZEPINE
     Indication: EPILEPSY
     Dosage: ?          OTHER FREQUENCY:MORNING;OTHER ROUTE:TUBE?
  2. CARBAMAZEPINE LIQUID 100MG/5ML [Suspect]
     Active Substance: CARBAMAZEPINE
     Dosage: ?          OTHER FREQUENCY:AFTERNOON;OTHER ROUTE:8-15 ML EVENING?

REACTIONS (2)
  - Seizure [None]
  - Product substitution issue [None]

NARRATIVE: CASE EVENT DATE: 2015
